FAERS Safety Report 18484485 (Version 2)
Quarter: 2020Q4

REPORT INFORMATION
  Report Type: Spontaneous
  Country: PH (occurrence: PH)
  Receive Date: 20201110
  Receipt Date: 20201112
  Transmission Date: 20210114
  Serious: Yes (Other)
  Sender: FDA-Public Use
  Company Number: PH-009507513-2011PHL005669

PATIENT
  Sex: Male

DRUGS (1)
  1. KEYTRUDA [Suspect]
     Active Substance: PEMBROLIZUMAB
     Indication: PROSTATE CANCER
     Dosage: UNK

REACTIONS (5)
  - Tubulointerstitial nephritis [Unknown]
  - Renal disorder [Unknown]
  - Product use in unapproved indication [Unknown]
  - Chronic kidney disease [Unknown]
  - Prostatic obstruction [Unknown]
